FAERS Safety Report 12228475 (Version 3)
Quarter: 2016Q2

REPORT INFORMATION
  Report Type: Spontaneous
  Country: US (occurrence: US)
  Receive Date: 20160401
  Receipt Date: 20160615
  Transmission Date: 20160815
  Serious: Yes (Hospitalization, Other)
  Sender: FDA-Public Use
  Company Number: US-PFIZER INC-2016182221

PATIENT
  Age: 50 Year
  Sex: Male
  Weight: 95.25 kg

DRUGS (6)
  1. GEODON [Suspect]
     Active Substance: ZIPRASIDONE HYDROCHLORIDE\ZIPRASIDONE MESYLATE
     Indication: MENTAL DISORDER
     Dosage: 40 MG ONCE DAILY AT NIGHT
     Route: 048
     Dates: start: 20160304, end: 201603
  2. GEODON [Suspect]
     Active Substance: ZIPRASIDONE HYDROCHLORIDE\ZIPRASIDONE MESYLATE
     Dosage: 40 MG, 1X/DAY
     Dates: start: 201603, end: 201603
  3. HYDROCHLOROTHIAZIDE. [Concomitant]
     Active Substance: HYDROCHLOROTHIAZIDE
     Dosage: UNK
     Dates: end: 201601
  4. GEODON [Suspect]
     Active Substance: ZIPRASIDONE HYDROCHLORIDE\ZIPRASIDONE MESYLATE
     Dosage: 60 MG, ONCE AT NIGHT
     Route: 048
     Dates: start: 20160307, end: 20160307
  5. GEODON [Suspect]
     Active Substance: ZIPRASIDONE HYDROCHLORIDE\ZIPRASIDONE MESYLATE
     Dosage: 40 MG, ONCE AT NIGHT
     Route: 048
     Dates: start: 20160308, end: 20160321
  6. BENZTROPINE [Concomitant]
     Active Substance: BENZTROPINE
     Dosage: UNK
     Dates: start: 201603, end: 201603

REACTIONS (12)
  - Cough [Unknown]
  - Abdominal pain [Not Recovered/Not Resolved]
  - Neuroleptic malignant syndrome [Not Recovered/Not Resolved]
  - Eosinophilia [Unknown]
  - Dyspnoea [Not Recovered/Not Resolved]
  - Hyperhidrosis [Unknown]
  - Dry mouth [Unknown]
  - Visual impairment [Unknown]
  - Somnolence [Unknown]
  - Cutaneous symptom [Unknown]
  - Pain [Not Recovered/Not Resolved]
  - Hypersensitivity [Unknown]

NARRATIVE: CASE EVENT DATE: 201603
